FAERS Safety Report 12847543 (Version 1)
Quarter: 2016Q4

REPORT INFORMATION
  Report Type: Spontaneous
  Country: GB (occurrence: GB)
  Receive Date: 20161014
  Receipt Date: 20161014
  Transmission Date: 20170207
  Serious: Yes (Other)
  Sender: FDA-Public Use
  Company Number: GB-PFIZER INC-2016473519

PATIENT
  Age: 33 Year
  Sex: Female
  Weight: 52.61 kg

DRUGS (1)
  1. DOXYCYCLINE MONOHYDRATE [Suspect]
     Active Substance: DOXYCYCLINE
     Dosage: 8X100MG CAPSULES - 2 TO BE TAKEN ON DAY 1 THEN 1 A DAY THEREAFTER.
     Route: 048
     Dates: start: 20160928, end: 20160928

REACTIONS (2)
  - Malaise [Recovered/Resolved]
  - Hypobarism [Recovered/Resolved]

NARRATIVE: CASE EVENT DATE: 20160928
